FAERS Safety Report 23866983 (Version 6)
Quarter: 2024Q3

REPORT INFORMATION
  Report Type: Report from Study
  Country: US (occurrence: US)
  Receive Date: 20240517
  Receipt Date: 20240731
  Transmission Date: 20241017
  Serious: No
  Sender: DECIPHERA PHARMACEUTICALS
  Company Number: US-DECIPHERA PHARMACEUTICALS LLC-2024US000433

PATIENT
  Age: 74 Year
  Sex: Female

DRUGS (1)
  1. QINLOCK [Suspect]
     Active Substance: RIPRETINIB
     Indication: Gastrointestinal stromal tumour
     Dosage: 150 MILLIGRAM, QD

REACTIONS (5)
  - Nodule [Unknown]
  - Hypertension [Unknown]
  - Alopecia [Unknown]
  - Myalgia [Unknown]
  - Stenosis [Unknown]

NARRATIVE: CASE EVENT DATE: 20240509
